FAERS Safety Report 17694568 (Version 2)
Quarter: 2020Q2

REPORT INFORMATION
  Report Type: Spontaneous
  Country: US (occurrence: US)
  Receive Date: 20200422
  Receipt Date: 20200428
  Transmission Date: 20200714
  Serious: Yes (Other)
  Sender: FDA-Public Use
  Company Number: US-RECKITT BENCKISER HEALTHCARE INT LIMITED-RB-85370-2020

PATIENT
  Age: 59 Year
  Sex: Female

DRUGS (2)
  1. MUCINEX [Suspect]
     Active Substance: GUAIFENESIN
     Indication: COUGH
  2. MUCINEX [Suspect]
     Active Substance: GUAIFENESIN
     Indication: RESPIRATORY TRACT CONGESTION
     Dosage: 1200 MILLIGRAM, SINGLE, AMOUNT USED: 2 TABLETS
     Route: 065
     Dates: start: 20200414, end: 202004

REACTIONS (5)
  - Hallucination [Recovered/Resolved]
  - Nausea [Recovered/Resolved]
  - Eye disorder [Recovered/Resolved]
  - Abnormal dreams [Recovered/Resolved]
  - Headache [Recovered/Resolved]

NARRATIVE: CASE EVENT DATE: 20200415
